FAERS Safety Report 4677608-1 (Version None)
Quarter: 2005Q2

REPORT INFORMATION
  Report Type: 
  Country: None (occurrence: None)
  Receive Date: 20050527
  Receipt Date: 20050527
  Transmission Date: 20051028
  Serious: No
  Sender: FDA-Public Use
  Company Number: None

PATIENT
  Sex: Male
  Weight: 92.8 kg

DRUGS (3)
  1. AMIFOSTINE [Suspect]
     Indication: AMYLOIDOSIS
     Dosage: 740 MG/M2 ON DAY -2 FOR 5 MINUITES
     Dates: start: 20050508
  2. MELPHALAN [Suspect]
     Dosage: GIVEN IN A SINGLE INFUSION FOR 5 MINUTES AT 740 MG/M2 ADMINISTERED 15 TO 30 MINUTES AFTER AMIFOSTINS
  3. COLACE [Concomitant]

REACTIONS (11)
  - ASTHENIA [None]
  - BUNDLE BRANCH BLOCK LEFT [None]
  - CHEST PAIN [None]
  - DEHYDRATION [None]
  - DIZZINESS [None]
  - FEBRILE NEUTROPENIA [None]
  - METABOLIC DISORDER [None]
  - NEUROPATHY PERIPHERAL [None]
  - ORTHOSTATIC HYPOTENSION [None]
  - PARAESTHESIA [None]
  - THROMBOCYTOPENIA [None]
